FAERS Safety Report 10708063 (Version 1)
Quarter: 2015Q1

REPORT INFORMATION
  Report Type: Spontaneous
  Country: DE (occurrence: FR)
  Receive Date: 20150113
  Receipt Date: 20150113
  Transmission Date: 20150721
  Serious: Yes (Hospitalization)
  Sender: FDA-Public Use
  Company Number: FR-FRI-1000073563

PATIENT
  Age: 96 Year
  Sex: Male

DRUGS (2)
  1. MEMANTINE [Suspect]
     Active Substance: MEMANTINE
     Dosage: 20 MG
     Route: 048
     Dates: start: 20140720, end: 20140924
  2. CORDARONE [Concomitant]
     Active Substance: AMIODARONE HYDROCHLORIDE
     Dosage: 1 DOSAGE FORM
     Route: 048
     Dates: end: 20140924

REACTIONS (2)
  - Jaundice [Recovered/Resolved]
  - Cholestasis [Recovered/Resolved]

NARRATIVE: CASE EVENT DATE: 20140920
